FAERS Safety Report 23267352 (Version 1)
Quarter: 2023Q4

REPORT INFORMATION
  Report Type: Spontaneous
  Country: US (occurrence: None)
  Receive Date: 20231205
  Receipt Date: 20231205
  Transmission Date: 20240109
  Serious: Yes (Death)
  Sender: FDA-Public Use
  Company Number: None

PATIENT
  Age: 36 Year
  Sex: Male

DRUGS (14)
  1. TACROLIMUS [Suspect]
     Active Substance: TACROLIMUS
     Indication: Renal transplant
     Dates: end: 20231202
  2. MYCOPHENOLIC ACID [Suspect]
     Active Substance: MYCOPHENOLIC ACID
     Indication: Renal transplant
     Dates: end: 20231202
  3. FLUCONAZOLE [Concomitant]
  4. ALENDRONATE [Concomitant]
     Active Substance: ALENDRONATE SODIUM
  5. LEVETIRACETAM [Concomitant]
     Active Substance: LEVETIRACETAM
  6. PROPRANOLOL [Concomitant]
     Active Substance: PROPRANOLOL HYDROCHLORIDE
  7. EZETIMIBE [Concomitant]
     Active Substance: EZETIMIBE
  8. PREDNISONE [Concomitant]
     Active Substance: PREDNISONE
  9. ATIVAN [Concomitant]
     Active Substance: LORAZEPAM
  10. TUMS [Concomitant]
     Active Substance: CALCIUM CARBONATE
  11. AMLODIPINE [Concomitant]
  12. ELIQUIS [Concomitant]
     Active Substance: APIXABAN
  13. LASIX [Concomitant]
     Active Substance: FUROSEMIDE
  14. SODIUM POLYSTYRENE SULFONATE [Concomitant]
     Active Substance: SODIUM POLYSTYRENE SULFONATE

REACTIONS (1)
  - Death [None]

NARRATIVE: CASE EVENT DATE: 20231202
